FAERS Safety Report 10512079 (Version 2)
Quarter: 2014Q4

REPORT INFORMATION
  Report Type: Spontaneous
  Country: JP (occurrence: JP)
  Receive Date: 20141010
  Receipt Date: 20141017
  Transmission Date: 20150528
  Serious: Yes (Other)
  Sender: FDA-Public Use
  Company Number: JP-BAUSCH-BL-2014-006496

PATIENT
  Age: 38 Year
  Sex: Male

DRUGS (2)
  1. CLENAFIN TOPICAL SOLUTION 10% FOR NAIL (EFINACONAZOLE) [Suspect]
     Active Substance: EFINACONAZOLE
     Indication: ONYCHOMYCOSIS
     Dosage: ADEQUATE DOSES
     Route: 061
     Dates: start: 20140909, end: 20140910
  2. DALACIN T [Concomitant]
     Indication: PITTED KERATOLYSIS
     Route: 062
     Dates: start: 20140909

REACTIONS (1)
  - Dermatitis contact [Recovered/Resolved]

NARRATIVE: CASE EVENT DATE: 20140910
